FAERS Safety Report 6525531-X (Version None)
Quarter: 2009Q4

REPORT INFORMATION
  Report Type: 
  Country: None (occurrence: None)
  Receive Date: 20091224
  Receipt Date: 20091214
  Transmission Date: 20100525
  Serious: Yes (Hospitalization)
  Sender: FDA-Public Use
  Company Number: 2009AL007762

PATIENT
  Age: 66 Year
  Sex: Female

DRUGS (6)
  1. RIFAMPIN [Suspect]
     Indication: TUBERCULOSIS GASTROINTESTINAL
     Dosage: 450 MG
  2. ISONIAZID [Concomitant]
  3. ETHAMBUTOL HYDROCHLORIDE [Concomitant]
  4. CALCIUM ANTAGONIST [Concomitant]
  5. ANTIHYPERGLYCAEMICS [Concomitant]
  6. PYRAZINAMIDE [Concomitant]

REACTIONS (2)
  - PSEUDOMEMBRANOUS COLITIS [None]
  - RECTAL CANCER [None]
